FAERS Safety Report 10699892 (Version 1)
Quarter: 2015Q1

REPORT INFORMATION
  Report Type: Report from Study
  Country: US (occurrence: US)
  Receive Date: 20150109
  Receipt Date: 20150109
  Transmission Date: 20150721
  Serious: Yes (Other)
  Sender: FDA-Public Use
  Company Number: PHEH2015US000696

PATIENT
  Sex: Female

DRUGS (1)
  1. EXELON PATCH [Suspect]
     Active Substance: RIVASTIGMINE
     Indication: DEMENTIA ALZHEIMER^S TYPE
     Dosage: 13.3 MG, UNK
     Route: 062

REACTIONS (4)
  - Hydrocephalus [Unknown]
  - Parkinson^s disease [Unknown]
  - Vascular dementia [Unknown]
  - Cerebrovascular accident [Unknown]
